FAERS Safety Report 6968260-0 (Version None)
Quarter: 2010Q3

REPORT INFORMATION
  Report Type: 
  Country: None (occurrence: None)
  Receive Date: 20100901
  Receipt Date: 20100819
  Transmission Date: 20110219
  Serious: Yes (Other)
  Sender: FDA-Public Use
  Company Number: 2010AC000354

PATIENT
  Age: 69 Year
  Sex: Female

DRUGS (7)
  1. DIGOXIN [Suspect]
     Indication: ATRIAL FIBRILLATION
     Dosage: 0.250 MG;QD; PO
     Route: 048
     Dates: start: 20061101, end: 20080401
  2. ASPIRIN [Concomitant]
  3. COUMADIN [Concomitant]
  4. CORGARD [Concomitant]
  5. PEPCID [Concomitant]
  6. PLAVIX [Concomitant]
  7. NEXIUM [Concomitant]

REACTIONS (15)
  - AORTIC ARTERIOSCLEROSIS [None]
  - CARDIAC MURMUR [None]
  - CHEST PAIN [None]
  - CONTUSION [None]
  - ECONOMIC PROBLEM [None]
  - ERUCTATION [None]
  - INJURY [None]
  - NAUSEA [None]
  - OEDEMA [None]
  - PAIN [None]
  - PLEURAL FIBROSIS [None]
  - RENAL CYST [None]
  - SLEEP DISORDER [None]
  - SPINAL OSTEOARTHRITIS [None]
  - UNEVALUABLE EVENT [None]
